FAERS Safety Report 19018666 (Version 3)
Quarter: 2021Q2

REPORT INFORMATION
  Report Type: Spontaneous
  Country: JP (occurrence: JP)
  Receive Date: 20210317
  Receipt Date: 20210402
  Transmission Date: 20210717
  Serious: Yes (Other)
  Sender: FDA-Public Use
  Company Number: JP-ASTELLAS-2021US009533

PATIENT
  Age: 64 Year
  Sex: Male

DRUGS (31)
  1. FUNGUARD [Suspect]
     Active Substance: MICAFUNGIN SODIUM
     Indication: PRODUCT USED FOR UNKNOWN INDICATION
     Dosage: 150 MG
     Route: 041
     Dates: start: 20130410, end: 20130418
  2. BARACLUDE [Suspect]
     Active Substance: ENTECAVIR
     Indication: PRODUCT USED FOR UNKNOWN INDICATION
     Dosage: 0.5 MG
     Route: 048
     Dates: start: 20130409, end: 20130708
  3. GRAN [FILGRASTIM] [Suspect]
     Active Substance: FILGRASTIM
     Indication: TRANSPLANT
  4. PROGRAF [Suspect]
     Active Substance: TACROLIMUS
     Indication: PROPHYLAXIS
  5. CUBICIN [Suspect]
     Active Substance: DAPTOMYCIN
     Dosage: 6 MG/KG
     Route: 041
     Dates: start: 20130419, end: 20130422
  6. RECOMODULIN [Suspect]
     Active Substance: THROMBOMODULIN ALFA
     Indication: THROMBOTIC MICROANGIOPATHY
     Route: 041
     Dates: start: 20130419, end: 20130424
  7. NEO MINOPHAGEN C [GLYCYRRHIZIC ACID, AMMONIUM SALT] [Suspect]
     Active Substance: AMMONIUM GLYCYRRHIZATE
     Indication: PRODUCT USED FOR UNKNOWN INDICATION
     Dosage: 60 ML,ONCE DAILY
     Route: 042
     Dates: start: 20130409, end: 20130509
  8. LASIX [Suspect]
     Active Substance: FUROSEMIDE
     Indication: PRODUCT USED FOR UNKNOWN INDICATION
     Route: 042
     Dates: start: 20130409, end: 20130426
  9. AMPHOTERICIN B, LIPOSOME [Suspect]
     Active Substance: AMPHOTERICIN B
     Indication: PRODUCT USED FOR UNKNOWN INDICATION
     Route: 041
     Dates: start: 20130409, end: 20130409
  10. CEFEPIME HYDROCHLORIDE. [Suspect]
     Active Substance: CEFEPIME HYDROCHLORIDE
     Indication: SEPSIS
     Route: 041
     Dates: start: 20130326, end: 20130408
  11. CUBICIN [Suspect]
     Active Substance: DAPTOMYCIN
     Indication: SEPSIS
     Dosage: 6 MG/KG
     Route: 041
     Dates: start: 20130409, end: 20130418
  12. TRANSAMIN [Suspect]
     Active Substance: TRANEXAMIC ACID
     Indication: PRODUCT USED FOR UNKNOWN INDICATION
     Route: 065
     Dates: start: 20130409, end: 20130412
  13. ACICLOVIR [Suspect]
     Active Substance: ACYCLOVIR
     Indication: PROPHYLAXIS
     Route: 041
     Dates: start: 20130410, end: 20130416
  14. HANP [Suspect]
     Active Substance: CARPERITIDE
     Indication: PRODUCT USED FOR UNKNOWN INDICATION
     Dosage: 0.1 MEG/KG/MIN, ONCE DAILY
     Route: 041
     Dates: start: 20130411, end: 20130502
  15. SOLU?MEDROL [Suspect]
     Active Substance: METHYLPREDNISOLONE SODIUM SUCCINATE
     Indication: PROPHYLAXIS
  16. MEROPENEM TRIHYDRATE [Suspect]
     Active Substance: MEROPENEM
     Indication: PRODUCT USED FOR UNKNOWN INDICATION
     Route: 041
     Dates: start: 20130409
  17. OMEPRAZOLE SODIUM [Suspect]
     Active Substance: OMEPRAZOLE SODIUM
     Indication: PROPHYLAXIS
     Route: 042
     Dates: start: 20130409, end: 20130503
  18. URSO [Suspect]
     Active Substance: URSODIOL
     Indication: PROPHYLAXIS
     Route: 048
     Dates: start: 20130409, end: 20130409
  19. CELLCEPT [Suspect]
     Active Substance: MYCOPHENOLATE MOFETIL\MYCOPHENOLATE MOFETIL HYDROCHLORIDE
     Indication: GRAFT VERSUS HOST DISEASE
     Route: 048
     Dates: start: 20130409, end: 20130518
  20. DIGOSIN [Suspect]
     Active Substance: DIGOXIN
     Indication: PROPHYLAXIS
  21. SOLU?MEDROL [Suspect]
     Active Substance: METHYLPREDNISOLONE SODIUM SUCCINATE
     Indication: GRAFT VERSUS HOST DISEASE
     Route: 042
     Dates: start: 20130421, end: 20130502
  22. AMIKACIN SULFATE. [Suspect]
     Active Substance: AMIKACIN SULFATE
     Indication: PRODUCT USED FOR UNKNOWN INDICATION
     Dosage: 1.2 G
     Route: 065
     Dates: start: 20130409, end: 20130409
  23. MAGNESIUM SULFATE. [Suspect]
     Active Substance: MAGNESIUM SULFATE
     Indication: PRODUCT USED FOR UNKNOWN INDICATION
     Route: 065
     Dates: start: 20130411, end: 20130501
  24. DIGOSIN [Suspect]
     Active Substance: DIGOXIN
     Indication: ATRIAL FIBRILLATION
     Dosage: 250 UG, ONCE DAILY
     Route: 065
     Dates: start: 20130413, end: 20130413
  25. PROGRAF [Suspect]
     Active Substance: TACROLIMUS
     Indication: GRAFT VERSUS HOST DISEASE
     Dosage: 0.1 MG/KG, ONCE DAILY
     Route: 041
     Dates: start: 20130409, end: 20130409
  26. JANUVIA [Suspect]
     Active Substance: SITAGLIPTIN PHOSPHATE
     Indication: PRODUCT USED FOR UNKNOWN INDICATION
     Route: 048
     Dates: start: 20130409, end: 20140424
  27. GRAN [FILGRASTIM] [Suspect]
     Active Substance: FILGRASTIM
     Indication: CYTOPENIA
     Dosage: 0.3 MG, ONCE DAILY
     Route: 065
     Dates: start: 20130409, end: 20130426
  28. SOLU?CORTEF [Suspect]
     Active Substance: HYDROCORTISONE SODIUM SUCCINATE
     Indication: GRAFT VERSUS HOST DISEASE
     Route: 065
     Dates: start: 20130410, end: 20130413
  29. SOLU?CORTEF [Suspect]
     Active Substance: HYDROCORTISONE SODIUM SUCCINATE
     Indication: PROPHYLAXIS
  30. FOSCAVIR [Suspect]
     Active Substance: FOSCARNET SODIUM
     Indication: PROPHYLAXIS
     Route: 041
     Dates: start: 20130416, end: 20130521
  31. VFEND [Suspect]
     Active Substance: VORICONAZOLE
     Indication: PRODUCT USED FOR UNKNOWN INDICATION
     Route: 048
     Dates: start: 20130419, end: 20130517

REACTIONS (8)
  - Cardiac failure acute [Recovering/Resolving]
  - Blood urea increased [Recovering/Resolving]
  - Drug ineffective [Unknown]
  - Thrombotic microangiopathy [Recovering/Resolving]
  - Gamma-glutamyltransferase increased [Recovered/Resolved]
  - Weight increased [Recovering/Resolving]
  - Blood alkaline phosphatase increased [Recovering/Resolving]
  - Blood creatinine increased [Recovering/Resolving]

NARRATIVE: CASE EVENT DATE: 20130411
